FAERS Safety Report 5844744-3 (Version None)
Quarter: 2008Q3

REPORT INFORMATION
  Report Type: 
  Country: None (occurrence: None)
  Receive Date: 20080814
  Receipt Date: 20080805
  Transmission Date: 20090109
  Serious: Yes (Hospitalization)
  Sender: FDA-Public Use
  Company Number: US-JNJFOC-20080801502

PATIENT
  Age: 79 Year
  Sex: Female

DRUGS (1)
  1. ELMIRON [Suspect]
     Indication: CYSTITIS INTERSTITIAL
     Route: 048

REACTIONS (6)
  - GOUT [None]
  - HYDRONEPHROSIS [None]
  - RED BLOOD CELLS URINE [None]
  - RENAL FAILURE [None]
  - URINARY TRACT INFECTION [None]
  - WHITE BLOOD CELLS URINE [None]
